FAERS Safety Report 24435024 (Version 1)
Quarter: 2024Q4

REPORT INFORMATION
  Report Type: Report from Study
  Country: US (occurrence: US)
  Receive Date: 20241014
  Receipt Date: 20241014
  Transmission Date: 20250115
  Serious: Yes (Hospitalization, Other)
  Sender: JOHNSON AND JOHNSON
  Company Number: US-JNJFOC-20240710628

PATIENT
  Age: 59 Year
  Sex: Male

DRUGS (4)
  1. TECVAYLI [Suspect]
     Active Substance: TECLISTAMAB-CQYV
     Indication: Plasma cell myeloma
     Route: 058
     Dates: start: 20240617
  2. TECVAYLI [Suspect]
     Active Substance: TECLISTAMAB-CQYV
     Route: 058
     Dates: start: 20240623
  3. DIPHENHYDRAMINE HYDROCHLORIDE [Concomitant]
     Active Substance: DIPHENHYDRAMINE HYDROCHLORIDE
     Indication: Premedication
  4. DEXAMETHASONE [Concomitant]
     Active Substance: DEXAMETHASONE
     Indication: Plasma cell myeloma

REACTIONS (10)
  - Hernia repair [Recovered/Resolved]
  - Renal impairment [Not Recovered/Not Resolved]
  - Fatigue [Not Recovered/Not Resolved]
  - Anaemia [Unknown]
  - Diarrhoea [Not Recovered/Not Resolved]
  - Urticaria [Not Recovered/Not Resolved]
  - Injection site erythema [Not Recovered/Not Resolved]
  - Injection site swelling [Not Recovered/Not Resolved]
  - Depression [Not Recovered/Not Resolved]
  - Weight decreased [Not Recovered/Not Resolved]

NARRATIVE: CASE EVENT DATE: 20240623
